FAERS Safety Report 8114004-9 (Version None)
Quarter: 2012Q1

REPORT INFORMATION
  Report Type: 
  Country: None (occurrence: None)
  Receive Date: 20120203
  Receipt Date: 20110926
  Transmission Date: 20120608
  Serious: Yes (Hospitalization, Congenital Anomaly)
  Sender: FDA-Public Use
  Company Number: US-ROCHE-GNE323488

PATIENT
  Sex: Male

DRUGS (1)
  1. XOLAIR [Suspect]
     Indication: ASTHMA
     Dosage: 375 MG, UNK
     Route: 064
     Dates: start: 20060324

REACTIONS (4)
  - BRONCHIOLITIS [None]
  - MATERNAL EXPOSURE TIMING UNSPECIFIED [None]
  - BRONCHOMALACIA [None]
  - PNEUMONIA [None]
